FAERS Safety Report 4406844-4 (Version None)
Quarter: 2004Q3

REPORT INFORMATION
  Report Type: 
  Country: None (occurrence: None)
  Receive Date: 20040715
  Receipt Date: 20040701
  Transmission Date: 20050211
  Serious: Yes (Life-Threatening)
  Sender: FDA-Public Use
  Company Number: 8006552

PATIENT
  Age: 42 Year
  Sex: Male
  Weight: 105 kg

DRUGS (3)
  1. KEPPRA [Suspect]
     Indication: EPILEPSY
     Dosage: 500 MG 2/D PO
     Route: 048
     Dates: start: 20030901, end: 20040601
  2. TOPAMAX [Suspect]
     Indication: EPILEPSY
     Dosage: 300 MG /D PO
     Route: 048
     Dates: start: 20030901, end: 20040601
  3. L-THYROXIN [Concomitant]

REACTIONS (20)
  - ABDOMINAL TENDERNESS [None]
  - BLOOD THYROID STIMULATING HORMONE INCREASED [None]
  - BODY TEMPERATURE INCREASED [None]
  - C-REACTIVE PROTEIN INCREASED [None]
  - CANDIDIASIS [None]
  - DERMATITIS ALLERGIC [None]
  - DRUG TOXICITY [None]
  - FACTITIOUS DISORDER [None]
  - GENERAL PHYSICAL HEALTH DETERIORATION [None]
  - GRAND MAL CONVULSION [None]
  - HAEMODYNAMIC INSTABILITY [None]
  - HYPERTHYROIDISM [None]
  - INJURY [None]
  - PANCREATITIS NECROTISING [None]
  - PLEURAL EFFUSION [None]
  - PNEUMONIA [None]
  - RESPIRATORY FAILURE [None]
  - THYROID DISORDER [None]
  - URINARY TRACT DISORDER [None]
  - URTICARIA [None]
